FAERS Safety Report 6177823-4 (Version None)
Quarter: 2009Q2

REPORT INFORMATION
  Report Type: 
  Country: None (occurrence: None)
  Receive Date: 20090504
  Receipt Date: 20090422
  Transmission Date: 20091009
  Serious: Yes (Other)
  Sender: FDA-Public Use
  Company Number: US-BAYER-200911275BCC

PATIENT
  Age: 77 Year
  Sex: Female
  Weight: 70 kg

DRUGS (1)
  1. PHILLIPS' MILK OF MAGNESIA CHERRY [Suspect]
     Indication: CONSTIPATION
     Dosage: BOTTLE SIZE 12 OZ

REACTIONS (1)
  - RECTAL HAEMORRHAGE [None]
